FAERS Safety Report 15662129 (Version 1)
Quarter: 2018Q4

REPORT INFORMATION
  Report Type: Spontaneous
  Country: RU (occurrence: RU)
  Receive Date: 20181127
  Receipt Date: 20181127
  Transmission Date: 20190205
  Serious: Yes (Hospitalization, Other)
  Sender: FDA-Public Use
  Company Number: RU-SHIRE-RU201837587

PATIENT

DRUGS (1)
  1. ELAPRASE [Suspect]
     Active Substance: IDURSULFASE
     Indication: MUCOPOLYSACCHARIDOSIS II
     Dosage: UNK UNK, 1X/WEEK
     Route: 065
     Dates: start: 201511

REACTIONS (7)
  - Pyrexia [Unknown]
  - Chills [Unknown]
  - Pruritus [Recovered/Resolved]
  - Catheter site infection [Unknown]
  - Urticaria [Recovered/Resolved]
  - Dyspnoea [Unknown]
  - Pallor [Unknown]
